FAERS Safety Report 6016400-2 (Version None)
Quarter: 2008Q4

REPORT INFORMATION
  Report Type: 
  Country: None (occurrence: None)
  Receive Date: 20081222
  Receipt Date: 20081203
  Transmission Date: 20090506
  Serious: Yes (Hospitalization, Other)
  Sender: FDA-Public Use
  Company Number: US-PFIZER INC-2008089508

PATIENT
  Sex: Female

DRUGS (4)
  1. XANAX [Suspect]
  2. NEXIUM [Concomitant]
     Indication: GASTRIC DISORDER
  3. ACETYLSALICYLIC ACID [Concomitant]
     Indication: PROPHYLAXIS
  4. ALLERGY MEDICATION [Concomitant]
     Indication: SINUS DISORDER

REACTIONS (31)
  - ABNORMAL BEHAVIOUR [None]
  - ASTHENIA [None]
  - BALANCE DISORDER [None]
  - CHOKING SENSATION [None]
  - CONFUSIONAL STATE [None]
  - CONSTIPATION [None]
  - DEPRESSION [None]
  - DISTURBANCE IN ATTENTION [None]
  - DROOLING [None]
  - DRY MOUTH [None]
  - DYSKINESIA [None]
  - DYSPHAGIA [None]
  - EATING DISORDER [None]
  - EYE SWELLING [None]
  - FEELING ABNORMAL [None]
  - GASTRIC DISORDER [None]
  - HYPOACUSIS [None]
  - HYPOAESTHESIA [None]
  - IRIS DISORDER [None]
  - MEMORY IMPAIRMENT [None]
  - MENTAL IMPAIRMENT [None]
  - MUSCLE DISORDER [None]
  - MUSCLE SPASMS [None]
  - NERVOUS SYSTEM DISORDER [None]
  - NIGHT SWEATS [None]
  - PAIN [None]
  - PARAESTHESIA [None]
  - SENSORY LOSS [None]
  - SUICIDAL IDEATION [None]
  - VISUAL ACUITY REDUCED [None]
  - WEIGHT DECREASED [None]
